FAERS Safety Report 20652593 (Version 1)
Quarter: 2022Q1

REPORT INFORMATION
  Report Type: Spontaneous
  Country: IT (occurrence: IT)
  Receive Date: 20220330
  Receipt Date: 20220330
  Transmission Date: 20220423
  Serious: Yes (Hospitalization)
  Sender: FDA-Public Use
  Company Number: IT-PERRIGO-22IT004263

PATIENT
  Age: 70 Year
  Sex: Female

DRUGS (5)
  1. CETIRIZINE HYDROCHLORIDE [Suspect]
     Active Substance: CETIRIZINE HYDROCHLORIDE
     Indication: Pruritus
     Dosage: 10 MG, QD
     Route: 048
  2. CETIRIZINE HYDROCHLORIDE [Suspect]
     Active Substance: CETIRIZINE HYDROCHLORIDE
     Dosage: 10 MG, QD
     Route: 048
  3. LISINOPRIL [Concomitant]
     Active Substance: LISINOPRIL
     Indication: Hypertension
     Dosage: UNK
     Route: 048
  4. BETASTINE [Concomitant]
     Indication: Dizziness
     Dosage: UNK
     Route: 048
  5. PRAZEPAM [Concomitant]
     Active Substance: PRAZEPAM
     Indication: Anxiety
     Dosage: UNK
     Route: 048

REACTIONS (1)
  - Drug eruption [Recovered/Resolved]
